FAERS Safety Report 10428540 (Version 1)
Quarter: 2014Q3

REPORT INFORMATION
  Report Type: Spontaneous
  Country: CN (occurrence: CN)
  Receive Date: 20140903
  Receipt Date: 20140903
  Transmission Date: 20150326
  Serious: Yes (Life-Threatening, Other)
  Sender: FDA-Public Use
  Company Number: CN-BAXTER-2014BAX051268

PATIENT
  Age: 60 Year
  Sex: Male
  Weight: 70 kg

DRUGS (5)
  1. COMPOUND AMINO ACID INJECTION (18AA-V) [Suspect]
     Active Substance: AMINO ACIDS
     Indication: NUTRITIONAL SUPPLEMENTATION
     Route: 041
     Dates: start: 20140308, end: 20140308
  2. CLINOLEIC  20% [Suspect]
     Active Substance: OLIVE OIL\SOYBEAN OIL
     Indication: PARENTERAL NUTRITION
     Route: 041
     Dates: start: 20140308, end: 20140308
  3. ALANYL-GLUTAMINE INJECTION [Suspect]
     Active Substance: ALANYL GLUTAMINE
     Indication: NUTRITIONAL SUPPLEMENTATION
     Route: 041
     Dates: start: 20140308, end: 20140308
  4. ALANYL-GLUTAMINE INJECTION [Suspect]
     Active Substance: ALANYL GLUTAMINE
     Indication: OFF LABEL USE
  5. ALANYL-GLUTAMINE INJECTION [Suspect]
     Active Substance: ALANYL GLUTAMINE
     Indication: PARENTERAL NUTRITION

REACTIONS (3)
  - Discomfort [Unknown]
  - Chills [Recovering/Resolving]
  - Hyperpyrexia [Recovering/Resolving]

NARRATIVE: CASE EVENT DATE: 20140308
